FAERS Safety Report 12443231 (Version 1)
Quarter: 2016Q2

REPORT INFORMATION
  Report Type: Spontaneous
  Country: BR (occurrence: BR)
  Receive Date: 20160607
  Receipt Date: 20160607
  Transmission Date: 20160815
  Serious: Yes (Other)
  Sender: FDA-Public Use
  Company Number: BR-JNJFOC-20160601132

PATIENT
  Sex: Female

DRUGS (1)
  1. TYLEX [Suspect]
     Active Substance: ACETAMINOPHEN\CODEINE PHOSPHATE
     Indication: RHEUMATIC DISORDER
     Route: 065

REACTIONS (5)
  - Drug ineffective [Unknown]
  - Abasia [Unknown]
  - Pain in extremity [Unknown]
  - Bone pain [Unknown]
  - Off label use [Unknown]
